FAERS Safety Report 8524062-5 (Version None)
Quarter: 2012Q3

REPORT INFORMATION
  Report Type: 
  Country: None (occurrence: None)
  Receive Date: 20120719
  Receipt Date: 20120515
  Transmission Date: 20120928
  Serious: No
  Sender: FDA-Public Use
  Company Number: DL2012-0399

PATIENT
  Age: 40 Year
  Sex: Female

DRUGS (5)
  1. MISOPROSTOL [Suspect]
     Dosage: 800 MCG, BUCCAL
     Route: 002
  2. HAS BLOOD PRESSURE MEDICATION AND NOT TAKING IT [Concomitant]
  3. ALBUTEROL [Concomitant]
  4. MIFEPRISTONE (MIFEPREX) [Suspect]
     Indication: ABORTION INDUCED
     Dosage: 200 MG, ORAL
     Route: 048
     Dates: start: 20120301
  5. DOXYCYCLINE [Concomitant]

REACTIONS (3)
  - PELVIC PAIN [None]
  - HAEMORRHAGE [None]
  - MUSCLE SPASMS [None]
